FAERS Safety Report 7301001-6 (Version None)
Quarter: 2010Q4

REPORT INFORMATION
  Report Type: 
  Country: None (occurrence: None)
  Receive Date: 20101229
  Receipt Date: 20100901
  Transmission Date: 20110411
  Serious: No
  Sender: FDA-Public Use
  Company Number: 1000016059

PATIENT
  Age: 53 Year
  Sex: Male

DRUGS (4)
  1. BYSTOLIC [Suspect]
     Indication: HYPERTENSION
     Dosage: 10 MG (10 MG, 1 IN 1 D), ORAL
     Route: 048
     Dates: start: 20100801
  2. CORTEF [Concomitant]
  3. CATAPRES [Concomitant]
  4. FAMVIR [Concomitant]

REACTIONS (1)
  - DRUG INEFFECTIVE [None]
